FAERS Safety Report 6930003-4 (Version None)
Quarter: 2010Q3

REPORT INFORMATION
  Report Type: 
  Country: None (occurrence: None)
  Receive Date: 20100818
  Receipt Date: 20100805
  Transmission Date: 20110219
  Serious: Yes (Hospitalization, Other)
  Sender: FDA-Public Use
  Company Number: US-ELI_LILLY_AND_COMPANY-US201008002001

PATIENT
  Age: 52 Year
  Sex: Male

DRUGS (6)
  1. CYMBALTA [Suspect]
     Indication: DEPRESSION
     Dosage: 60 MG, DAILY (1/D)
  2. ANDROGEL [Concomitant]
  3. WELLBUTRIN SR [Concomitant]
     Dosage: 150 MG, 2/D
  4. TRAZODONE HCL [Concomitant]
     Dosage: 100 MG, EACH EVENING
  5. SUBOXONE [Concomitant]
     Dosage: 8 MG, 3/D
  6. FLOMAX [Concomitant]

REACTIONS (5)
  - ASTHENIA [None]
  - CRYING [None]
  - DEPRESSION [None]
  - FEELING OF DESPAIR [None]
  - SUICIDAL IDEATION [None]
